FAERS Safety Report 20135546 (Version 1)
Quarter: 2021Q4

REPORT INFORMATION
  Report Type: Spontaneous
  Country: CA (occurrence: CA)
  Receive Date: 20211201
  Receipt Date: 20211201
  Transmission Date: 20220303
  Serious: Yes (Hospitalization)
  Sender: FDA-Public Use
  Company Number: CA-TEVA-2021-CA-1983136

PATIENT
  Age: 85 Year
  Sex: Female

DRUGS (1)
  1. METFORMIN [Interacting]
     Active Substance: METFORMIN HYDROCHLORIDE
     Indication: Product used for unknown indication
     Route: 065

REACTIONS (4)
  - Drug level abnormal [Unknown]
  - Glomerular filtration rate decreased [Unknown]
  - Lactic acidosis [Unknown]
  - Labelled drug-disease interaction issue [Unknown]
